FAERS Safety Report 8516560-5 (Version None)
Quarter: 2012Q3

REPORT INFORMATION
  Report Type: 
  Country: None (occurrence: None)
  Receive Date: 20120711
  Receipt Date: 20120711
  Transmission Date: 20120928
  Serious: Yes (Other)
  Sender: FDA-Public Use
  Company Number: None

PATIENT
  Sex: Male

DRUGS (8)
  1. LOENSTEIN [Concomitant]
  2. FUROSEMIDE [Concomitant]
  3. ATORVASTATIN [Concomitant]
  4. INSN [Concomitant]
  5. METROPOLATIN [Concomitant]
  6. VITAMIN D [Concomitant]
  7. TRICLOR [Concomitant]
  8. BACLOFEN [Suspect]
     Indication: MUSCLE SPASMS
     Dosage: 10MG 3 TIMES A DAY PO
     Route: 048

REACTIONS (2)
  - ABNORMAL BEHAVIOUR [None]
  - COORDINATION ABNORMAL [None]
